FAERS Safety Report 14260736 (Version 1)
Quarter: 2017Q4

REPORT INFORMATION
  Report Type: Spontaneous
  Country: US (occurrence: US)
  Receive Date: 20171207
  Receipt Date: 20171207
  Transmission Date: 20180321
  Serious: Yes (Death, Hospitalization, Other)
  Sender: FDA-Public Use
  Company Number: US-GLAXOSMITHKLINE-US2017GSK184607

PATIENT
  Age: 22 Month
  Sex: Male

DRUGS (1)
  1. PROPAFENONE. [Suspect]
     Active Substance: PROPAFENONE
     Dosage: UNK
     Route: 048

REACTIONS (2)
  - Accidental exposure to product [Fatal]
  - Death [Fatal]
